FAERS Safety Report 14649686 (Version 3)
Quarter: 2018Q2

REPORT INFORMATION
  Report Type: Report from Study
  Country: NZ (occurrence: NZ)
  Receive Date: 20180316
  Receipt Date: 20180406
  Transmission Date: 20180711
  Serious: Yes (Hospitalization)
  Sender: FDA-Public Use
  Company Number: NZ-ROCHE-2083327

PATIENT
  Age: 73 Year
  Sex: Male
  Weight: 82 kg

DRUGS (12)
  1. APPLE SEEDS [Concomitant]
     Route: 048
     Dates: start: 20160331
  2. OLIVE LEAF EXTRACT [Concomitant]
     Route: 048
     Dates: start: 20160331
  3. VITAMIN E [Concomitant]
     Active Substance: .ALPHA.-TOCOPHEROL
     Route: 048
     Dates: start: 20160331
  4. FLAXSEED [Concomitant]
     Active Substance: FLAX SEED
     Dosage: 1 TBSP (TABLESPOON DOSING UNIT)
     Route: 048
     Dates: start: 20160331
  5. TURMERIC [Concomitant]
     Active Substance: HERBALS\TURMERIC
     Route: 048
     Dates: start: 20150103
  6. FISH OIL [Concomitant]
     Active Substance: FISH OIL
     Route: 048
  7. VITAMIN B3 [Concomitant]
     Active Substance: NIACIN
     Route: 048
     Dates: start: 20150310
  8. FRUSEMIDE [Concomitant]
     Active Substance: FUROSEMIDE
     Indication: DYSPNOEA
     Route: 048
     Dates: start: 20180403
  9. VENETOCLAX. [Suspect]
     Active Substance: VENETOCLAX
     Indication: CHRONIC LYMPHOCYTIC LEUKAEMIA
     Dosage: DATE OF MOST RECENT DOSE OF 400 MG OF VENETOCLAX PRIOR TO SERIOUS ADVERSE EVENT (SAE) 29/FEB/2016 AT
     Route: 048
     Dates: start: 20150421
  10. VITAMIN C [Concomitant]
     Active Substance: ASCORBIC ACID
     Route: 048
     Dates: start: 20150103
  11. CINNAMON. [Concomitant]
     Active Substance: CINNAMON
     Dosage: 0.3 TBSP (TABLESPOON)
     Route: 048
     Dates: start: 20141130
  12. OBINUTUZUMAB. [Suspect]
     Active Substance: OBINUTUZUMAB
     Indication: CHRONIC LYMPHOCYTIC LEUKAEMIA
     Dosage: DOSE ACCORDING TO PROTOCOL (100 MG OR 1000 MG, DEPENDING ON SPLITTING RULES, AT CYCLE 1, DAY 1 (IF 1
     Route: 042
     Dates: start: 20150324

REACTIONS (1)
  - Pneumocystis jirovecii pneumonia [Recovering/Resolving]

NARRATIVE: CASE EVENT DATE: 20180222
